FAERS Safety Report 5589821-X (Version None)
Quarter: 2008Q1

REPORT INFORMATION
  Report Type: 
  Country: None (occurrence: None)
  Receive Date: 20080110
  Receipt Date: 20080110
  Transmission Date: 20080703
  Serious: Yes (Life-Threatening, Hospitalization, Other)
  Sender: FDA-Public Use
  Company Number: None

PATIENT
  Age: 61 Year
  Sex: Female
  Weight: 72.5755 kg

DRUGS (2)
  1. AREDIA [Suspect]
     Indication: BONE DISORDER
     Dosage: 1XPER MONTH  IV DRIP
     Route: 041
     Dates: start: 20000427, end: 20051022
  2. ZOMETA [Suspect]

REACTIONS (15)
  - ACTIVITIES OF DAILY LIVING IMPAIRED [None]
  - ANAPHYLACTIC SHOCK [None]
  - BLISTER [None]
  - CARDIAC DISORDER [None]
  - DRUG WITHDRAWAL SYNDROME [None]
  - DYSPEPSIA [None]
  - EAR PAIN [None]
  - GASTROOESOPHAGEAL REFLUX DISEASE [None]
  - INFECTION [None]
  - INFUSION RELATED REACTION [None]
  - MIGRAINE [None]
  - MUSCLE SPASMS [None]
  - PAIN IN JAW [None]
  - SWELLING [None]
  - VOMITING [None]
